APPROVED DRUG PRODUCT: PRAZOSIN HYDROCHLORIDE
Active Ingredient: PRAZOSIN HYDROCHLORIDE
Strength: EQ 5MG BASE
Dosage Form/Route: CAPSULE;ORAL
Application: A217268 | Product #003 | TE Code: AB
Applicant: ALEMBIC PHARMACEUTICALS LTD
Approved: Mar 6, 2023 | RLD: No | RS: No | Type: RX